FAERS Safety Report 14412746 (Version 1)
Quarter: 2018Q1

REPORT INFORMATION
  Report Type: Spontaneous
  Country: US (occurrence: US)
  Receive Date: 20180119
  Receipt Date: 20180119
  Transmission Date: 20180509
  Serious: Yes (Hospitalization)
  Sender: FDA-Public Use
  Company Number: None

PATIENT
  Age: 90 Year
  Sex: Male
  Weight: 70.8 kg

DRUGS (12)
  1. SYNTHROID [Concomitant]
     Active Substance: LEVOTHYROXINE SODIUM
  2. FLOMAX [Concomitant]
     Active Substance: TAMSULOSIN HYDROCHLORIDE
  3. WARFARIN [Suspect]
     Active Substance: WARFARIN
     Indication: ATRIAL FIBRILLATION
     Route: 048
  4. DIAZEPAM. [Concomitant]
     Active Substance: DIAZEPAM
  5. VASOTEC [Concomitant]
     Active Substance: ENALAPRIL MALEATE
  6. ASPIRIN. [Suspect]
     Active Substance: ASPIRIN
     Indication: PRODUCT USED FOR UNKNOWN INDICATION
     Route: 048
  7. LASIX [Concomitant]
     Active Substance: FUROSEMIDE
  8. COMPAXINE [Concomitant]
  9. ALDACTONE [Concomitant]
     Active Substance: SPIRONOLACTONE
  10. COREG [Concomitant]
     Active Substance: CARVEDILOL
  11. COLACE [Concomitant]
     Active Substance: DOCUSATE SODIUM
  12. FE [Concomitant]
     Active Substance: IRON

REACTIONS (3)
  - Haematemesis [None]
  - Intestinal ischaemia [None]
  - Haemorrhagic erosive gastritis [None]

NARRATIVE: CASE EVENT DATE: 20170831
